FAERS Safety Report 9650506 (Version 1)
Quarter: 2013Q4

REPORT INFORMATION
  Report Type: Spontaneous
  Country: US (occurrence: US)
  Receive Date: 20131029
  Receipt Date: 20131029
  Transmission Date: 20140711
  Serious: Yes (Hospitalization)
  Sender: FDA-Public Use
  Company Number: US-009507513-1310USA010987

PATIENT
  Sex: Female

DRUGS (6)
  1. DULERA [Suspect]
     Indication: MULTIPLE ALLERGIES
     Dosage: UNK, PRN
  2. ADVAIR [Suspect]
     Indication: ASTHMA
     Dosage: 1 PUFF DAILY
     Route: 055
     Dates: start: 2006
  3. NASONEX [Suspect]
     Indication: HYPERSENSITIVITY
     Dosage: UNK, PRN
  4. NASONEX [Suspect]
     Indication: NASAL POLYPS
  5. LORAZEPAM [Concomitant]
  6. PREDNISONE [Concomitant]
     Route: 048

REACTIONS (7)
  - Dyspnoea [Not Recovered/Not Resolved]
  - Ill-defined disorder [Not Recovered/Not Resolved]
  - Peak expiratory flow rate increased [Not Recovered/Not Resolved]
  - Malaise [Not Recovered/Not Resolved]
  - Nasopharyngitis [Not Recovered/Not Resolved]
  - Cough [Not Recovered/Not Resolved]
  - Dysphonia [Not Recovered/Not Resolved]
